FAERS Safety Report 13341135 (Version 3)
Quarter: 2017Q1

REPORT INFORMATION
  Report Type: Report from Study
  Country: TW (occurrence: TW)
  Receive Date: 20170316
  Receipt Date: 20170331
  Transmission Date: 20170428
  Serious: Yes (Hospitalization, Other)
  Sender: FDA-Public Use
  Company Number: TW-PFIZER INC-2017111111

PATIENT
  Age: 36 Year
  Sex: Female
  Weight: 44 kg

DRUGS (7)
  1. ATIVAN [Concomitant]
     Active Substance: LORAZEPAM
     Indication: INSOMNIA
     Dosage: UNK
     Dates: start: 20170301
  2. BLINDED THERAPY [Suspect]
     Active Substance: INVESTIGATIONAL PRODUCT
     Dosage: UNK, DAYS 1 AND 8 OF EVERY 21-DAY CYCLE (CYCLES 1 TO 8)
     Route: 042
     Dates: start: 20170210, end: 20170221
  3. DOXORUBICIN HCL [Suspect]
     Active Substance: DOXORUBICIN HYDROCHLORIDE
     Indication: SOFT TISSUE SARCOMA
     Dosage: 75 MG/M2, DAY 1 OF EVERY 21-DAY CYCLE (CYCLES 1 TO 8)
     Route: 042
     Dates: start: 20170119, end: 20170210
  4. BLINDED THERAPY [Suspect]
     Active Substance: INVESTIGATIONAL PRODUCT
     Indication: SOFT TISSUE SARCOMA
     Dosage: UNK UNK, DAYS 1 AND 8 OF EVERY 21-DAY CYCLE (CYCLES 1 TO 8)
     Route: 042
     Dates: start: 20170119, end: 20170221
  5. APREPITANT. [Concomitant]
     Active Substance: APREPITANT
     Indication: PROPHYLAXIS
     Dosage: UNK
     Dates: start: 20170210
  6. DEXRAZOXANE. [Suspect]
     Active Substance: DEXRAZOXANE
     Indication: SOFT TISSUE SARCOMA
     Dosage: 750 MG/M2, ON DAY 1 OF EVERY 21-DAY CYCLE (CYCLES 1 TO 8)
     Route: 042
     Dates: start: 20170119, end: 20170210
  7. CODEINE PHOSPHATE [Concomitant]
     Active Substance: CODEINE PHOSPHATE
     Indication: HAEMOPTYSIS
     Dosage: UNK
     Dates: start: 20170201

REACTIONS (1)
  - Tumour pain [Not Recovered/Not Resolved]

NARRATIVE: CASE EVENT DATE: 20170303
